FAERS Safety Report 15218663 (Version 1)
Quarter: 2018Q3

REPORT INFORMATION
  Report Type: Report from Study
  Country: None (occurrence: US)
  Receive Date: 20180731
  Receipt Date: 20180731
  Transmission Date: 20181010
  Serious: Yes (Other)
  Sender: FDA-Public Use
  Company Number: US-ABBVIE-18K-163-2273911-00

PATIENT
  Age: 41 Year
  Sex: Female

DRUGS (1)
  1. HUMIRA [Suspect]
     Active Substance: ADALIMUMAB
     Indication: RHEUMATOID ARTHRITIS
     Route: 058
     Dates: end: 2018

REACTIONS (10)
  - Benign neoplasm [Unknown]
  - Sensitivity to weather change [Unknown]
  - Rheumatoid arthritis [Not Recovered/Not Resolved]
  - Arthralgia [Unknown]
  - Drug ineffective [Unknown]
  - Post procedural infection [Recovered/Resolved]
  - Oophorectomy [Unknown]
  - Food allergy [Recovered/Resolved]
  - Musculoskeletal pain [Unknown]
  - Stress [Unknown]

NARRATIVE: CASE EVENT DATE: 2008
